FAERS Safety Report 6982196-0 (Version None)
Quarter: 2010Q3

REPORT INFORMATION
  Report Type: 
  Country: None (occurrence: None)
  Receive Date: 20100914
  Receipt Date: 20100409
  Transmission Date: 20110219
  Serious: No
  Sender: FDA-Public Use
  Company Number: US-PFIZER INC-2009255830

PATIENT
  Sex: Female
  Weight: 57 kg

DRUGS (4)
  1. LYRICA [Suspect]
     Indication: FIBROMYALGIA
     Dosage: 50 MG DAILY
     Route: 048
     Dates: start: 20090728
  2. LYRICA [Suspect]
     Dosage: 75 MG, 1X/DAY
     Route: 048
     Dates: start: 20090801
  3. LYRICA [Suspect]
     Dosage: 100 MG, 1X/DAY
     Route: 048
     Dates: start: 20090811, end: 20090811
  4. ULTRAM [Concomitant]
     Indication: FIBROMYALGIA
     Dosage: UNK

REACTIONS (5)
  - ANXIETY [None]
  - DIARRHOEA [None]
  - EUPHORIC MOOD [None]
  - HEADACHE [None]
  - PANIC ATTACK [None]
